FAERS Safety Report 4560219-6 (Version None)
Quarter: 2005Q1

REPORT INFORMATION
  Report Type: 
  Country: None (occurrence: None)
  Receive Date: 20050125
  Receipt Date: 20030514
  Transmission Date: 20050727
  Serious: Yes (Hospitalization, Other)
  Sender: FDA-Public Use
  Company Number: 200315088GDDC

PATIENT
  Age: 68 Year
  Sex: Female

DRUGS (1)
  1. ARAVA [Suspect]
     Indication: RHEUMATOID ARTHRITIS
     Route: 048
     Dates: start: 20030401, end: 20030426

REACTIONS (19)
  - ANTINUCLEAR ANTIBODY POSITIVE [None]
  - BACTERIAL INFECTION [None]
  - BLOOD CREATININE INCREASED [None]
  - BLOOD IMMUNOGLOBULIN A INCREASED [None]
  - BLOOD IMMUNOGLOBULIN G INCREASED [None]
  - BURNING SENSATION [None]
  - CELLULITIS [None]
  - CULTURE WOUND POSITIVE [None]
  - ENTEROCOCCAL INFECTION [None]
  - GANGRENE [None]
  - GLOMERULONEPHRITIS PROLIFERATIVE [None]
  - HAEMATURIA [None]
  - PARAESTHESIA [None]
  - PRURITUS [None]
  - RHEUMATOID NODULE [None]
  - RHEUMATOID VASCULITIS [None]
  - SENSORY DISTURBANCE [None]
  - STAPHYLOCOCCAL INFECTION [None]
  - VASCULITIS NECROTISING [None]
